FAERS Safety Report 24768743 (Version 2)
Quarter: 2025Q3

REPORT INFORMATION
  Report Type: Spontaneous
  Country: EU (occurrence: EU)
  Receive Date: 20241224
  Receipt Date: 20250803
  Transmission Date: 20251021
  Serious: Yes (Other)
  Sender: ALEXION PHARMACEUTICALS
  Company Number: EU-ASTRAZENECA-202412EEA014907FR

PATIENT
  Age: 61 Year
  Sex: Female

DRUGS (3)
  1. DURVALUMAB [Suspect]
     Active Substance: DURVALUMAB
     Indication: Small cell lung cancer
     Route: 065
  2. CARBOPLATIN [Concomitant]
     Active Substance: CARBOPLATIN
  3. ETOPOSIDE [Concomitant]
     Active Substance: ETOPOSIDE

REACTIONS (1)
  - Systemic lupus erythematosus [Recovered/Resolved]
